FAERS Safety Report 9253435 (Version 2)
Quarter: 2013Q2

REPORT INFORMATION
  Report Type: Spontaneous
  Country: US (occurrence: US)
  Receive Date: 20130425
  Receipt Date: 20130510
  Transmission Date: 20140414
  Serious: Yes (Hospitalization)
  Sender: FDA-Public Use
  Company Number: US-BIOGENIDEC-2013BI034982

PATIENT
  Sex: Female

DRUGS (1)
  1. AVONEX [Suspect]
     Indication: MULTIPLE SCLEROSIS
     Route: 030
     Dates: start: 20070815

REACTIONS (6)
  - Renal surgery [Unknown]
  - Nephrectomy [Unknown]
  - Nephrolithiasis [Unknown]
  - Influenza [Unknown]
  - Gait disturbance [Unknown]
  - Vomiting [Unknown]
